FAERS Safety Report 17153368 (Version 1)
Quarter: 2019Q4

REPORT INFORMATION
  Report Type: Spontaneous
  Country: US (occurrence: US)
  Receive Date: 20191213
  Receipt Date: 20191213
  Transmission Date: 20200122
  Serious: No
  Sender: FDA-Public Use
  Company Number: US-GILEAD-2019-0442581

PATIENT
  Age: 2 Year
  Sex: Female

DRUGS (2)
  1. EMTRIVA [Suspect]
     Active Substance: EMTRICITABINE
     Indication: PROPHYLAXIS AGAINST HIV INFECTION
     Route: 065
  2. VIREAD [Suspect]
     Active Substance: TENOFOVIR DISOPROXIL FUMARATE
     Indication: PROPHYLAXIS AGAINST HIV INFECTION
     Route: 065

REACTIONS (1)
  - Off label use [Unknown]
